FAERS Safety Report 5420886-1 (Version None)
Quarter: 2007Q3

REPORT INFORMATION
  Report Type: 
  Country: None (occurrence: None)
  Receive Date: 20070821
  Receipt Date: 20070813
  Transmission Date: 20080115
  Serious: Yes (Hospitalization)
  Sender: FDA-Public Use
  Company Number: FR-ASTRAZENECA-2007CG00948

PATIENT
  Age: 65 Year
  Sex: Male

DRUGS (4)
  1. ZESTORETIC [Suspect]
     Indication: HYPERTENSION
     Route: 048
     Dates: start: 20030115, end: 20070416
  2. NOVATREX [Suspect]
     Indication: RHEUMATOID ARTHRITIS
     Dosage: 20 MG WEEKLY
     Route: 048
     Dates: start: 19970115, end: 20070325
  3. FONZYLANE [Suspect]
     Indication: ARTERITIS
     Route: 048
     Dates: start: 20030615
  4. PLAVIX [Suspect]
     Indication: ARTERITIS
     Route: 048
     Dates: start: 20030315

REACTIONS (1)
  - INTERSTITIAL LUNG DISEASE [None]
